FAERS Safety Report 10838921 (Version 1)
Quarter: 2015Q1

REPORT INFORMATION
  Report Type: Spontaneous
  Country: GB (occurrence: None)
  Receive Date: 20150218
  Receipt Date: 20150218
  Transmission Date: 20150721
  Serious: Yes (Hospitalization)
  Sender: FDA-Public Use
  Company Number: GB2015K0350SPO

PATIENT
  Sex: Male

DRUGS (2)
  1. LANSOPRAZOLE GENERIC (LANSOPRAZOLE) UNKNOWN [Suspect]
     Active Substance: LANSOPRAZOLE
     Route: 048
     Dates: end: 20150123
  2. FUROSEMIDE (FUROSEMIDE) [Suspect]
     Active Substance: FUROSEMIDE
     Route: 048
     Dates: end: 20150123

REACTIONS (2)
  - Neutropenia [None]
  - Neutropenic sepsis [None]

NARRATIVE: CASE EVENT DATE: 20141231
